FAERS Safety Report 14227674 (Version 1)
Quarter: 2017Q4

REPORT INFORMATION
  Report Type: Spontaneous
  Country: NO (occurrence: NO)
  Receive Date: 20171127
  Receipt Date: 20171127
  Transmission Date: 20180321
  Serious: Yes (Death)
  Sender: FDA-Public Use
  Company Number: NO-SA-2017SA046680

PATIENT
  Age: 71 Year
  Sex: Female

DRUGS (3)
  1. LEVAXIN [Concomitant]
     Active Substance: LEVOTHYROXINE SODIUM
     Route: 065
  2. KLEXANE [Suspect]
     Active Substance: ENOXAPARIN
     Indication: DEEP VEIN THROMBOSIS
     Route: 058
     Dates: start: 20160406, end: 20160806
  3. CALCIGRAN FORTE [Concomitant]
     Active Substance: CALCIUM CARBONATE\CHOLECALCIFEROL
     Route: 065

REACTIONS (6)
  - Polyuria [Fatal]
  - Red blood cell count decreased [Fatal]
  - Fatigue [Fatal]
  - Internal haemorrhage [Fatal]
  - Haematoma [Fatal]
  - Asthenia [Fatal]

NARRATIVE: CASE EVENT DATE: 20160801
